FAERS Safety Report 5427647-8 (Version None)
Quarter: 2007Q3

REPORT INFORMATION
  Report Type: 
  Country: None (occurrence: None)
  Receive Date: 20070828
  Receipt Date: 20070817
  Transmission Date: 20080115
  Serious: Yes (Hospitalization)
  Sender: FDA-Public Use
  Company Number: B0484645A

PATIENT
  Sex: Male

DRUGS (1)
  1. SENSODYNE-F [Suspect]
     Indication: DRUG USE FOR UNKNOWN INDICATION

REACTIONS (7)
  - BALANCE DISORDER [None]
  - DYSPNOEA [None]
  - LETHARGY [None]
  - LOWER RESPIRATORY TRACT INFECTION [None]
  - PAIN [None]
  - POOR QUALITY DRUG ADMINISTERED [None]
  - WEIGHT DECREASED [None]
